FAERS Safety Report 8347539-4 (Version None)
Quarter: 2012Q2

REPORT INFORMATION
  Report Type: 
  Country: None (occurrence: None)
  Receive Date: 20120509
  Receipt Date: 20120427
  Transmission Date: 20120825
  Serious: No
  Sender: FDA-Public Use
  Company Number: US-BAYER-2012-043954

PATIENT

DRUGS (2)
  1. IBUPROFEN (ADVIL) [Concomitant]
  2. NAPROXEN SODIUM [Suspect]
     Indication: ARTHRALGIA
     Route: 048

REACTIONS (1)
  - ARTHRALGIA [None]
